FAERS Safety Report 4527812-8 (Version None)
Quarter: 2004Q4

REPORT INFORMATION
  Report Type: 
  Country: None (occurrence: None)
  Receive Date: 20041123
  Receipt Date: 20040528
  Transmission Date: 20050328
  Serious: Yes (Other)
  Sender: FDA-Public Use
  Company Number: ATO-04-0535(0)

PATIENT
  Age: 40 Year
  Sex: Male
  Weight: 136.0791 kg

DRUGS (1)
  1. TRISENOX [Suspect]
     Indication: MYELODYSPLASTIC SYNDROME
     Dosage: 30 MG (0.25 MG/KG, 2X/WK), IVI
     Route: 042
     Dates: end: 20040501

REACTIONS (1)
  - PLATELET COUNT DECREASED [None]
